FAERS Safety Report 9033257 (Version 1)
Quarter: 2013Q1

REPORT INFORMATION
  Report Type: Spontaneous
  Country: GB (occurrence: GB)
  Receive Date: 20130128
  Receipt Date: 20130128
  Transmission Date: 20140127
  Serious: Yes (Death)
  Sender: FDA-Public Use
  Company Number: PHHY2013GB007299

PATIENT
  Age: 72 Year
  Sex: Female
  Weight: 55 kg

DRUGS (6)
  1. DONEPEZIL [Suspect]
     Indication: DEMENTIA WITH LEWY BODIES
     Dosage: 10 MG
  2. ADCAL-D3 [Concomitant]
     Dosage: 1 DF, BID
     Route: 048
  3. ENOXAPARIN [Concomitant]
     Dosage: 20 MG
     Route: 058
  4. MAGNESIUM HYDROXIDE [Concomitant]
     Dosage: 10 ML, BID
  5. SENNOSIDES A+B [Concomitant]
     Dosage: 7.5 MG, AT NIGHT
  6. PARACETAMOL [Concomitant]
     Dosage: 2 DF, QID

REACTIONS (1)
  - Gastrointestinal haemorrhage [Fatal]
